FAERS Safety Report 11853066 (Version 1)
Quarter: 2015Q4

REPORT INFORMATION
  Report Type: Spontaneous
  Country: US (occurrence: US)
  Receive Date: 20151218
  Receipt Date: 20151218
  Transmission Date: 20160305
  Serious: No
  Sender: FDA-Public Use
  Company Number: US-009507513-1512USA008543

PATIENT
  Age: 63 Year
  Sex: Male

DRUGS (2)
  1. PEGINTRON [Suspect]
     Active Substance: PEGINTERFERON ALFA-2B
  2. REBETOL [Suspect]
     Active Substance: RIBAVIRIN

REACTIONS (2)
  - No adverse event [Unknown]
  - Drug ineffective [Unknown]
